FAERS Safety Report 24587664 (Version 3)
Quarter: 2025Q1

REPORT INFORMATION
  Report Type: Report from Study
  Country: CA (occurrence: CA)
  Receive Date: 20241107
  Receipt Date: 20250103
  Transmission Date: 20250409
  Serious: Yes (Hospitalization, Other)
  Sender: JOHNSON AND JOHNSON
  Company Number: CA-JNJFOC-20240868431

PATIENT
  Age: 18 Year
  Sex: Female

DRUGS (7)
  1. REMICADE [Suspect]
     Active Substance: INFLIXIMAB
     Indication: Colitis ulcerative
     Dosage: 445MG
     Route: 041
     Dates: start: 20240819
  2. REMICADE [Suspect]
     Active Substance: INFLIXIMAB
     Dosage: (E)FE.2027  X 5 VIAL
     Route: 041
     Dates: start: 20240909
  3. REMICADE [Suspect]
     Active Substance: INFLIXIMAB
     Dosage: 445MG
     Route: 041
     Dates: start: 20240819
  4. REMICADE [Suspect]
     Active Substance: INFLIXIMAB
     Route: 041
  5. PREDNISONE [Concomitant]
     Active Substance: PREDNISONE
  6. IRON [Concomitant]
     Active Substance: IRON
  7. TYLENOL [Concomitant]
     Active Substance: ACETAMINOPHEN

REACTIONS (5)
  - Clostridium difficile infection [Not Recovered/Not Resolved]
  - Colitis ulcerative [Recovering/Resolving]
  - Therapeutic response decreased [Unknown]
  - Off label use [Unknown]
  - Drug level decreased [Unknown]

NARRATIVE: CASE EVENT DATE: 20241001
